FAERS Safety Report 10669598 (Version 2)
Quarter: 2015Q1

REPORT INFORMATION
  Report Type: Spontaneous
  Country: US (occurrence: US)
  Receive Date: 20141222
  Receipt Date: 20150320
  Transmission Date: 20150720
  Serious: No
  Sender: FDA-Public Use
  Company Number: US-LUNDBECK-DKLU1106029

PATIENT
  Sex: Male

DRUGS (5)
  1. ONFI [Suspect]
     Active Substance: CLOBAZAM
     Indication: LENNOX-GASTAUT SYNDROME
     Route: 048
     Dates: start: 201309, end: 20140909
  2. ONFI [Suspect]
     Active Substance: CLOBAZAM
     Route: 048
     Dates: start: 2014
  3. ONFI [Suspect]
     Active Substance: CLOBAZAM
     Route: 048
     Dates: start: 20140909, end: 2014
  4. OXCARBAZEPINE. [Concomitant]
     Active Substance: OXCARBAZEPINE
     Indication: PRODUCT USED FOR UNKNOWN INDICATION
  5. ZONISAMIDE. [Concomitant]
     Active Substance: ZONISAMIDE
     Indication: PRODUCT USED FOR UNKNOWN INDICATION

REACTIONS (2)
  - Fall [Recovered/Resolved]
  - Rash [Recovered/Resolved]
